FAERS Safety Report 6656507-X (Version None)
Quarter: 2010Q1

REPORT INFORMATION
  Report Type: 
  Country: None (occurrence: None)
  Receive Date: 20100329
  Receipt Date: 20100315
  Transmission Date: 20100710
  Serious: Yes (Hospitalization, Other)
  Sender: FDA-Public Use
  Company Number: US-MYLANLABS-2010S1004529

PATIENT
  Age: 47 Year
  Sex: Male

DRUGS (4)
  1. CLOZAPINE [Suspect]
     Indication: SCHIZOPHRENIA
     Route: 048
     Dates: start: 20080401, end: 20090212
  2. CLOZAPINE [Suspect]
     Route: 048
     Dates: start: 20100122
  3. CARBAMAZEPINE [Suspect]
  4. AZITHROMYCIN [Suspect]
     Indication: PNEUMONIA

REACTIONS (5)
  - GRANULOCYTOPENIA [None]
  - HYPERHIDROSIS [None]
  - PSYCHOTIC DISORDER [None]
  - TACHYCARDIA [None]
  - WHITE BLOOD CELL COUNT DECREASED [None]
